FAERS Safety Report 21762382 (Version 1)
Quarter: 2022Q4

REPORT INFORMATION
  Report Type: Spontaneous
  Country: FR (occurrence: FR)
  Receive Date: 20221221
  Receipt Date: 20221221
  Transmission Date: 20230112
  Serious: Yes (Hospitalization)
  Sender: FDA-Public Use
  Company Number: None

PATIENT
  Age: 36 Year
  Sex: Female

DRUGS (4)
  1. AMOXICILLIN [Suspect]
     Active Substance: AMOXICILLIN
     Indication: Product used for unknown indication
     Dosage: {6G (A BOX OF 6 TABLETS OF 1 G WAS FOUND)
     Route: 048
     Dates: start: 20211216, end: 20211216
  2. IBUPROFEN [Suspect]
     Active Substance: IBUPROFEN
     Indication: Product used for unknown indication
     Dosage: 30 TABLETS OF 200 MG THAT IS TO SAY 6 G OF IBUPROFEN
     Route: 048
     Dates: start: 20211216, end: 20211216
  3. DAFALGAN CODEINE [Suspect]
     Active Substance: ACETAMINOPHEN\CODEINE PHOSPHATE
     Indication: Product used for unknown indication
     Dosage: FILM-COATED TABLET, 32 TABLETS, THAT IS TO SAY 16 G OF PARACETAMOL AND 960 MG OF CODEINE
     Route: 065
     Dates: start: 20211216, end: 20211216
  4. JOSAMYCIN PROPIONATE [Suspect]
     Active Substance: JOSAMYCIN PROPIONATE
     Indication: Product used for unknown indication
     Dosage: {6G (1 VIAL OF 60 ML WAS FOUND)
     Route: 048
     Dates: start: 20211216, end: 20211216

REACTIONS (3)
  - Toxicity to various agents [Recovered/Resolved]
  - Hepatic cytolysis [Recovering/Resolving]
  - Vomiting [Recovered/Resolved]

NARRATIVE: CASE EVENT DATE: 20211216
